FAERS Safety Report 11394315 (Version 1)
Quarter: 2015Q3

REPORT INFORMATION
  Report Type: Spontaneous
  Country: US (occurrence: US)
  Receive Date: 20150819
  Receipt Date: 20150819
  Transmission Date: 20151125
  Serious: No
  Sender: FDA-Public Use
  Company Number: US-BAYER-2015-401474

PATIENT
  Age: 36 Year
  Sex: Female
  Weight: 56.69 kg

DRUGS (3)
  1. ALEVE PM [Suspect]
     Active Substance: DIPHENHYDRAMINE HYDROCHLORIDE\NAPROXEN SODIUM
     Indication: SLEEP DISORDER THERAPY
     Dosage: 4 DF, ONCE
     Route: 048
     Dates: start: 20150801, end: 20150801
  2. ONE A DAY ESSENTIAL [Suspect]
     Active Substance: VITAMINS
     Dosage: UNK
     Dates: start: 201505
  3. SYNTHROID [Concomitant]
     Active Substance: LEVOTHYROXINE SODIUM

REACTIONS (2)
  - Therapeutic response unexpected [Not Recovered/Not Resolved]
  - Product use issue [None]

NARRATIVE: CASE EVENT DATE: 201505
